FAERS Safety Report 12122248 (Version 1)
Quarter: 2016Q1

REPORT INFORMATION
  Report Type: Spontaneous
  Country: RO (occurrence: RO)
  Receive Date: 20160226
  Receipt Date: 20160226
  Transmission Date: 20160526
  Serious: Yes (Death, Hospitalization)
  Sender: FDA-Public Use
  Company Number: RO-ABBVIE-16P-135-1567131-00

PATIENT
  Age: 66 Year
  Sex: Female

DRUGS (3)
  1. VIEKIRAX [Suspect]
     Active Substance: OMBITASVIR\PARITAPREVIR\RITONAVIR
     Indication: HEPATITIS C
     Dosage: UNIT DOSE 12.5/75/50 MG
     Route: 048
     Dates: start: 20151228, end: 20160217
  2. REBETOL [Suspect]
     Active Substance: RIBAVIRIN
     Indication: HEPATITIS C
     Route: 048
     Dates: start: 20151228, end: 20160217
  3. EXVIERA [Suspect]
     Active Substance: DASABUVIR
     Indication: HEPATITIS C
     Route: 048
     Dates: start: 20151228, end: 20160217

REACTIONS (6)
  - Stasis dermatitis [Fatal]
  - Hepatic cirrhosis [Fatal]
  - Cardio-respiratory arrest [Fatal]
  - Interstitial lung disease [Fatal]
  - Child-Pugh-Turcotte score increased [Fatal]
  - Hepatic failure [Fatal]

NARRATIVE: CASE EVENT DATE: 2015
